FAERS Safety Report 14954206 (Version 2)
Quarter: 2018Q2

REPORT INFORMATION
  Report Type: Spontaneous
  Country: US (occurrence: US)
  Receive Date: 20180530
  Receipt Date: 20180530
  Transmission Date: 20180711
  Serious: Yes (Other)
  Sender: FDA-Public Use
  Company Number: US-CELGENEUS-USA-20180508031

PATIENT
  Age: 71 Year
  Sex: Female

DRUGS (8)
  1. LACTULOSE. [Concomitant]
     Active Substance: LACTULOSE
     Indication: CONSTIPATION
     Dosage: 10GM/15ML
     Route: 065
  2. REVLIMID [Suspect]
     Active Substance: LENALIDOMIDE
     Dosage: 15 MILLIGRAM
     Route: 048
     Dates: start: 20170609
  3. AMILORIDE W/HYDROCHLOROTHIAZIDE [Concomitant]
     Active Substance: AMLODIPINE\HYDROCHLOROTHIAZIDE\OLMESARTAN
     Indication: HYPERTENSION
     Dosage: 5MG/50MG
     Route: 065
  4. LORATADINE. [Concomitant]
     Active Substance: LORATADINE
     Indication: MULTIPLE ALLERGIES
     Route: 065
  5. REVLIMID [Suspect]
     Active Substance: LENALIDOMIDE
     Indication: PLASMA CELL MYELOMA
     Dosage: 25 MILLIGRAM
     Route: 048
     Dates: start: 201705
  6. REVLIMID [Suspect]
     Active Substance: LENALIDOMIDE
     Dosage: 15 MILLIGRAM
     Route: 048
     Dates: start: 201805
  7. BENADRYL [Concomitant]
     Active Substance: DIPHENHYDRAMINE HYDROCHLORIDE
     Indication: MULTIPLE ALLERGIES
     Route: 065
  8. TYLENOL W/CODEINE #3 [Concomitant]
     Indication: PAIN
     Route: 065

REACTIONS (2)
  - Nasal disorder [Unknown]
  - Nasopharyngitis [Unknown]

NARRATIVE: CASE EVENT DATE: 20180514
